FAERS Safety Report 25575097 (Version 1)
Quarter: 2025Q3

REPORT INFORMATION
  Report Type: Spontaneous
  Country: US (occurrence: US)
  Receive Date: 20250718
  Receipt Date: 20250718
  Transmission Date: 20251020
  Serious: Yes (Hospitalization)
  Sender: GRIFOLS
  Company Number: US-IGSA-BIG0036503

PATIENT
  Age: 75 Year
  Sex: Male
  Weight: 82.54 kg

DRUGS (4)
  1. PROLASTIN-C LIQUID [Suspect]
     Active Substance: .ALPHA.1-PROTEINASE INHIBITOR HUMAN
     Indication: Alpha-1 antitrypsin deficiency
     Dosage: 5070 MILLIGRAM, Q.WK.
     Route: 042
  2. HYDROCODONE BITARTRATE AND ACETAMINOPHEN [Concomitant]
     Active Substance: ACETAMINOPHEN\HYDROCODONE BITARTRATE
  3. LOPERAMIDE [Concomitant]
     Active Substance: LOPERAMIDE
     Route: 048
  4. OXYGEN [Concomitant]
     Active Substance: OXYGEN

REACTIONS (2)
  - Fall [Unknown]
  - Back injury [Unknown]

NARRATIVE: CASE EVENT DATE: 20250703
